FAERS Safety Report 7374626-X (Version None)
Quarter: 2011Q1

REPORT INFORMATION
  Report Type: 
  Country: None (occurrence: None)
  Receive Date: 20110325
  Receipt Date: 20100517
  Transmission Date: 20110831
  Serious: No
  Sender: FDA-Public Use
  Company Number: US-MYLANLABS-2010S1008879

PATIENT
  Age: 80 Year
  Sex: Male
  Weight: 77.11 kg

DRUGS (3)
  1. PREVACID [Concomitant]
     Route: 048
  2. FENTANYL-100 [Suspect]
     Indication: NECK PAIN
     Dosage: CHANGED Q48H
     Route: 062
     Dates: start: 20091201
  3. SYNTHROID [Concomitant]
     Route: 048

REACTIONS (2)
  - HOT FLUSH [None]
  - HYPERHIDROSIS [None]
